FAERS Safety Report 4808324-0 (Version None)
Quarter: 2005Q4

REPORT INFORMATION
  Report Type: 
  Country: None (occurrence: None)
  Receive Date: 20051021
  Receipt Date: 20051007
  Transmission Date: 20060501
  Serious: Yes (Other)
  Sender: FDA-Public Use
  Company Number: 2005P1000269

PATIENT
  Age: 62 Year
  Sex: Male
  Weight: 81 kg

DRUGS (7)
  1. RETEPLASE (RETEPLASE) [Suspect]
     Indication: ACUTE MYOCARDIAL INFARCTION
     Dosage: IV
     Route: 042
     Dates: start: 20050627, end: 20050627
  2. ABCIXIMAB (ABCIXIMAB) [Suspect]
     Indication: ACUTE MYOCARDIAL INFARCTION
     Dosage: IV
     Route: 042
     Dates: start: 20050627
  3. ASPIRIN [Concomitant]
  4. METOPROLOL [Concomitant]
  5. SIMVASTTIN [Concomitant]
  6. LACIDIPINE [Concomitant]
  7. CLOPIDOGREL BISULFATE [Concomitant]

REACTIONS (7)
  - CARDIAC VENTRICULOGRAM ABNORMAL [None]
  - CORONARY ARTERY STENOSIS [None]
  - EJECTION FRACTION DECREASED [None]
  - HAEMOGLOBIN DECREASED [None]
  - HYPOKINESIA [None]
  - POST PROCEDURAL COMPLICATION [None]
  - RESTLESSNESS [None]
